FAERS Safety Report 7363436-5 (Version None)
Quarter: 2011Q1

REPORT INFORMATION
  Report Type: 
  Country: None (occurrence: None)
  Receive Date: 20110321
  Receipt Date: 20110316
  Transmission Date: 20110831
  Serious: Yes (Death, Other)
  Sender: FDA-Public Use
  Company Number: PHFR2011GB01961

PATIENT
  Sex: Male

DRUGS (1)
  1. CLOZARIL [Suspect]
     Dosage: UNK MG, UNK
     Route: 048
     Dates: start: 20030411

REACTIONS (4)
  - PULMONARY EMBOLISM [None]
  - PAIN IN EXTREMITY [None]
  - OBESITY [None]
  - DEEP VEIN THROMBOSIS [None]
